FAERS Safety Report 20870014 (Version 2)
Quarter: 2022Q2

REPORT INFORMATION
  Report Type: Report from Study
  Country: NL (occurrence: NL)
  Receive Date: 20220525
  Receipt Date: 20220526
  Transmission Date: 20220721
  Serious: Yes (Death, Hospitalization, Other)
  Sender: FDA-Public Use
  Company Number: NL-NOVARTISPH-NVSC2022NL111716

PATIENT
  Sex: Female
  Weight: 2.8 kg

DRUGS (2)
  1. TRAMETINIB [Suspect]
     Active Substance: TRAMETINIB
     Indication: Metastatic malignant melanoma
     Dosage: UNK
     Route: 065
     Dates: start: 20220326
  2. TRAMETINIB [Suspect]
     Active Substance: TRAMETINIB
     Indication: Hypertrophic cardiomyopathy
     Dosage: 0.025 MG/KG
     Route: 048
     Dates: start: 20220324, end: 20220401

REACTIONS (5)
  - Death [Fatal]
  - Pyrexia [Unknown]
  - Sepsis [Recovered/Resolved]
  - Gastroenteritis norovirus [Unknown]
  - Diarrhoea [Unknown]

NARRATIVE: CASE EVENT DATE: 20220401
